FAERS Safety Report 7591121-3 (Version None)
Quarter: 2011Q3

REPORT INFORMATION
  Report Type: 
  Country: None (occurrence: None)
  Receive Date: 20110705
  Receipt Date: 20110629
  Transmission Date: 20111222
  Serious: Yes (Life-Threatening, Other)
  Sender: FDA-Public Use
  Company Number: US-ASTRAZENECA-2011SE38952

PATIENT
  Age: 61 Year
  Sex: Female
  Weight: 89.8 kg

DRUGS (2)
  1. NEXIUM [Suspect]
     Indication: GASTRIC DISORDER
     Route: 048
  2. SEROQUEL XR [Suspect]
     Indication: DEPRESSION
     Dosage: 50 OR 100 MG DAILY
     Route: 048

REACTIONS (6)
  - GASTRIC ULCER HAEMORRHAGE [None]
  - BLOOD CHOLESTEROL INCREASED [None]
  - DIABETES MELLITUS [None]
  - DRUG DOSE OMISSION [None]
  - APPARENT DEATH [None]
  - MALAISE [None]
